FAERS Safety Report 7830839-1 (Version None)
Quarter: 2011Q4

REPORT INFORMATION
  Report Type: 
  Country: None (occurrence: None)
  Receive Date: 20111021
  Receipt Date: 20111006
  Transmission Date: 20120403
  Serious: Yes (Death, Hospitalization)
  Sender: FDA-Public Use
  Company Number: ES-PFIZER INC-2011228427

PATIENT
  Age: 12 Year
  Sex: Female

DRUGS (2)
  1. IBUPROFEN [Suspect]
     Indication: BRONCHITIS
     Route: 048
  2. PENICILLIN [Suspect]
     Indication: BRONCHITIS

REACTIONS (1)
  - TOXIC EPIDERMAL NECROLYSIS [None]
